FAERS Safety Report 5340093-0 (Version None)
Quarter: 2007Q2

REPORT INFORMATION
  Report Type: 
  Country: None (occurrence: None)
  Receive Date: 20070525
  Receipt Date: 20070525
  Transmission Date: 20071010
  Serious: Yes (Hospitalization)
  Sender: FDA-Public Use
  Company Number: None

PATIENT
  Age: 73 Year
  Sex: Male

DRUGS (10)
  1. DIGOXIN [Suspect]
     Indication: ATRIAL FIBRILLATION
     Dosage: 0.25 MG DAY PO
     Route: 048
  2. SOTALOL HYDROCHLORIDE [Concomitant]
  3. DILTIAZEM [Concomitant]
  4. PROTONIX [Concomitant]
  5. LISINOPRIL [Concomitant]
  6. NEURONTIN [Concomitant]
  7. QUININE SULFATE [Concomitant]
  8. MULTI-VITAMIN [Concomitant]
  9. HYDROCODONE BITARTRATE [Concomitant]
  10. COMBIVENT [Concomitant]

REACTIONS (8)
  - ATRIAL FIBRILLATION [None]
  - BRADYCARDIA [None]
  - CONFUSIONAL STATE [None]
  - HYPOTENSION [None]
  - HYPOVOLAEMIA [None]
  - MENTAL IMPAIRMENT [None]
  - NODAL ARRHYTHMIA [None]
  - THERAPEUTIC AGENT TOXICITY [None]
